FAERS Safety Report 4335548-1 (Version None)
Quarter: 2004Q2

REPORT INFORMATION
  Report Type: 
  Country: None (occurrence: None)
  Receive Date: 20040406
  Receipt Date: 20040424
  Transmission Date: 20050107
  Serious: Yes (Other)
  Sender: FDA-Public Use
  Company Number: A0501876A

PATIENT
  Age: 53 Year
  Sex: Male
  Weight: 71.6683 kg

DRUGS (2)
  1. NICODERM CQ [Suspect]
     Indication: EX-SMOKER
     Dosage: 14 MG /TRANSDERMAL
     Route: 062
     Dates: start: 20040105
  2. VITAMIN CAP [Concomitant]

REACTIONS (1)
  - HYPERTENSION [None]
